FAERS Safety Report 17901445 (Version 1)
Quarter: 2020Q2

REPORT INFORMATION
  Report Type: Other
  Country: FR (occurrence: FR)
  Receive Date: 20200616
  Receipt Date: 20200616
  Transmission Date: 20200714
  Serious: Yes (Life-Threatening, Hospitalization)
  Sender: FDA-Public Use
  Company Number: FR-CADILA HEALTHCARE LIMITED-FR-ZYDUS-048707

PATIENT

DRUGS (11)
  1. KARDEGIC [Concomitant]
     Active Substance: ASPIRIN DL-LYSINE
     Indication: PRODUCT USED FOR UNKNOWN INDICATION
     Route: 048
  2. RAMIPRIL. [Concomitant]
     Active Substance: RAMIPRIL
     Indication: HYPERTENSION
     Route: 048
     Dates: end: 20200208
  3. ESOMEPRAZOLE. [Suspect]
     Active Substance: ESOMEPRAZOLE MAGNESIUM
     Indication: PRODUCT USED FOR UNKNOWN INDICATION
     Route: 048
     Dates: end: 20200208
  4. MOLSIDOMINE [Suspect]
     Active Substance: MOLSIDOMINE
     Indication: ANGINA PECTORIS
     Route: 048
     Dates: end: 20200208
  5. BISOPROLOL [Concomitant]
     Active Substance: BISOPROLOL
     Indication: HYPERTENSION
     Route: 048
     Dates: end: 20200208
  6. OXAZEPAM. [Suspect]
     Active Substance: OXAZEPAM
     Indication: PRODUCT USED FOR UNKNOWN INDICATION
     Dosage: 10 MILLIGRAM,(INTERVAL :1 DAYS)
     Route: 048
     Dates: end: 20200208
  7. AMLODIPINE [Concomitant]
     Active Substance: AMLODIPINE BESYLATE
     Indication: PRODUCT USED FOR UNKNOWN INDICATION
     Route: 048
     Dates: end: 20200208
  8. TERBUTALINE [Suspect]
     Active Substance: TERBUTALINE
     Indication: CHRONIC OBSTRUCTIVE PULMONARY DISEASE
     Route: 055
  9. IVABRADINE [Suspect]
     Active Substance: IVABRADINE
     Indication: PRODUCT USED FOR UNKNOWN INDICATION
     Route: 048
     Dates: end: 20200208
  10. ENANTONE [LEUPRORELIN] [Suspect]
     Active Substance: LEUPROLIDE ACETATE
     Indication: PROSTATE CANCER
     Dosage: 1 DOSAGE FORM,(INTERVAL :3 MONTHS)
     Route: 058
     Dates: start: 201906, end: 201912
  11. TERBUTALINE [Suspect]
     Active Substance: TERBUTALINE
     Route: 055

REACTIONS (1)
  - Interstitial lung disease [Recovering/Resolving]

NARRATIVE: CASE EVENT DATE: 202001
